FAERS Safety Report 26066220 (Version 1)
Quarter: 2025Q4

REPORT INFORMATION
  Report Type: Spontaneous
  Country: GB (occurrence: GB)
  Receive Date: 20251119
  Receipt Date: 20251119
  Transmission Date: 20260118
  Serious: Yes (Hospitalization, Other)
  Sender: PFIZER
  Company Number: GB-ROCHE-1089789

PATIENT
  Age: 47 Year
  Sex: Female
  Weight: 102 kg

DRUGS (4)
  1. DOCETAXEL [Suspect]
     Active Substance: DOCETAXEL
     Indication: HER2 positive breast cancer
     Dosage: 200 MG, CYCLIC, DAY 1 OF 21 DAY CYCLE (CUMULATIVE DOSE OF 85.7142857 MG)
     Route: 042
     Dates: start: 20120706
  2. HERCEPTIN [Suspect]
     Active Substance: TRASTUZUMAB
     Indication: HER2 positive breast cancer
     Dosage: 790 MG, CYCLIC, DAY 1 OF 21 DAY CYCLE (CUMULATIVE DOSE OF 338.571428 MG)
     Route: 042
     Dates: start: 20120706
  3. PLACEBO [Suspect]
     Active Substance: PLACEBO
     Indication: HER2 positive breast cancer
     Dosage: UNK
     Dates: start: 20120706
  4. PERTUZUMAB [Concomitant]
     Active Substance: PERTUZUMAB
     Indication: HER2 positive breast cancer
     Dosage: UNK UNK, CYCLIC, DAY 1 OF 21 DAY CYCLE
     Route: 042
     Dates: start: 20120706

REACTIONS (4)
  - Pyrexia [Recovered/Resolved]
  - Neutrophil count increased [Unknown]
  - Chills [Unknown]
  - Sinus tachycardia [Unknown]

NARRATIVE: CASE EVENT DATE: 20120715
